FAERS Safety Report 11875037 (Version 1)
Quarter: 2015Q4

REPORT INFORMATION
  Report Type: Spontaneous
  Country: GB (occurrence: GB)
  Receive Date: 20151229
  Receipt Date: 20151229
  Transmission Date: 20160305
  Serious: Yes (Other)
  Sender: FDA-Public Use
  Company Number: GB-WATSON-2015-27887

PATIENT
  Age: 67 Year
  Sex: Female
  Weight: 83.46 kg

DRUGS (1)
  1. DOXYCYCLINE ACTAVIS [Suspect]
     Active Substance: DOXYCYCLINE
     Indication: URINARY TRACT INFECTION
     Dosage: 100 MG, UNK (TWICE FORTS DAY THE 1 DAILY)
     Route: 048
     Dates: start: 20140718, end: 20140725

REACTIONS (1)
  - Skin exfoliation [Recovered/Resolved with Sequelae]
